FAERS Safety Report 12970091 (Version 1)
Quarter: 2016Q4

REPORT INFORMATION
  Report Type: Spontaneous
  Country: SA (occurrence: SA)
  Receive Date: 20161123
  Receipt Date: 20161123
  Transmission Date: 20170207
  Serious: Yes (Death)
  Sender: FDA-Public Use
  Company Number: SA-INCYTE CORPORATION-2016IN007321

PATIENT
  Age: 56 Year
  Sex: Male

DRUGS (1)
  1. JAKAVI [Suspect]
     Active Substance: RUXOLITINIB
     Indication: PRIMARY MYELOFIBROSIS
     Dosage: 5 MG, BID
     Route: 065
     Dates: start: 201601, end: 201604

REACTIONS (1)
  - Primary myelofibrosis [Fatal]

NARRATIVE: CASE EVENT DATE: 201605
